FAERS Safety Report 7693547 (Version 2)
Quarter: 2014Q2

REPORT INFORMATION
  Report Type: Spontaneous
  Country: US (occurrence: US)
  Receive Date: 20101206
  Receipt Date: 20140403
  Transmission Date: 20141212
  Serious: Yes (Hospitalization, Other)
  Sender: FDA-Public Use
  Company Number: US-PURDUE-USA-2010-0055910

PATIENT
  Age: 23 Year
  Sex: Male

DRUGS (5)
  1. OXYCONTIN (NDA 22-272) [Suspect]
     Indication: PAIN
     Dosage: 80 MG, UNK
     Route: 048
     Dates: start: 2006
  2. OXYCONTIN (NDA 22-272) [Suspect]
     Dosage: 10 MG, Q8H
  3. DILAUDID TABLET [Concomitant]
     Indication: PAIN
     Dosage: 4 MG, Q3H
  4. FLEXERIL                           /00428402/ [Concomitant]
     Indication: PAIN
     Dosage: 1-1/4
     Route: 060
  5. NEURONTIN [Concomitant]
     Indication: PAIN
     Dosage: 200 MG, Q8H
     Route: 058

REACTIONS (12)
  - Drug dependence [Unknown]
  - Substance abuse [Unknown]
  - Peripheral circulatory failure [Unknown]
  - Loss of consciousness [Unknown]
  - Needle track marks [Unknown]
  - Pain [Unknown]
  - Agitation [Unknown]
  - Inadequate analgesia [Unknown]
  - Drug tolerance increased [Unknown]
  - Depression [Unknown]
  - Antisocial personality disorder [Unknown]
  - Impaired gastric emptying [Unknown]
